FAERS Safety Report 21908373 (Version 1)
Quarter: 2023Q1

REPORT INFORMATION
  Report Type: Spontaneous
  Country: SA (occurrence: SA)
  Receive Date: 20230125
  Receipt Date: 20230125
  Transmission Date: 20230417
  Serious: Yes (Hospitalization, Other)
  Sender: FDA-Public Use
  Company Number: SA-INSUD PHARMA-2301SA00350

PATIENT

DRUGS (1)
  1. TESTOSTERONE [Suspect]
     Active Substance: TESTOSTERONE
     Indication: Muscle building therapy
     Dosage: DAILY SUPPLEMENTS FOR 2 MONTHS
     Route: 065

REACTIONS (11)
  - Herpes zoster meningoencephalitis [Recovering/Resolving]
  - Somnolence [Recovering/Resolving]
  - Loss of consciousness [Recovering/Resolving]
  - Herpes zoster cutaneous disseminated [Recovering/Resolving]
  - Skin burning sensation [Recovering/Resolving]
  - Pain of skin [Recovering/Resolving]
  - Paraesthesia [Recovering/Resolving]
  - Rash vesicular [Recovering/Resolving]
  - Skin erosion [Recovering/Resolving]
  - Scab [Recovering/Resolving]
  - Herpes zoster reactivation [Recovering/Resolving]
